FAERS Safety Report 23484004 (Version 2)
Quarter: 2024Q2

REPORT INFORMATION
  Report Type: Report from Study
  Country: US (occurrence: US)
  Receive Date: 20240205
  Receipt Date: 20240624
  Transmission Date: 20240716
  Serious: Yes (Other)
  Sender: FDA-Public Use
  Company Number: US-ABBVIE-5623154

PATIENT
  Sex: Female

DRUGS (3)
  1. SKYRIZI [Suspect]
     Active Substance: RISANKIZUMAB-RZAA
     Indication: Psoriatic arthropathy
     Dosage: AT WEEK 0 ?FORM STRENGTH: 150 MILLIGRAM
     Route: 058
     Dates: start: 20230331, end: 20230331
  2. SKYRIZI [Suspect]
     Active Substance: RISANKIZUMAB-RZAA
     Dosage: FORM STRENGTH: 150 MILLIGRAM?WEEK 4
     Route: 058
     Dates: start: 20230428, end: 20230428
  3. SKYRIZI [Suspect]
     Active Substance: RISANKIZUMAB-RZAA
     Dosage: FORM STRENGTH: 150 MILLIGRAM. DRUG START DATE IN 2023.
     Route: 058

REACTIONS (2)
  - Osteoarthritis [Recovering/Resolving]
  - COVID-19 [Recovered/Resolved]
